FAERS Safety Report 14700402 (Version 1)
Quarter: 2018Q1

REPORT INFORMATION
  Report Type: Spontaneous
  Country: US (occurrence: US)
  Receive Date: 20180330
  Receipt Date: 20180330
  Transmission Date: 20180509
  Serious: No
  Sender: FDA-Public Use
  Company Number: US-JNJFOC-20180324244

PATIENT
  Age: 72 Year
  Sex: Male
  Weight: 79.83 kg

DRUGS (2)
  1. SIMPONI [Suspect]
     Active Substance: GOLIMUMAB
     Indication: PSORIASIS
     Route: 058
     Dates: start: 201704
  2. SIMPONI [Suspect]
     Active Substance: GOLIMUMAB
     Indication: PSORIATIC ARTHROPATHY
     Route: 058
     Dates: start: 201704

REACTIONS (1)
  - Infection [Unknown]

NARRATIVE: CASE EVENT DATE: 20180315
